FAERS Safety Report 8834779 (Version 2)
Quarter: 2012Q4

REPORT INFORMATION
  Report Type: 
  Country: US (occurrence: US)
  Receive Date: 20121010
  Receipt Date: 20121031
  Transmission Date: 20130627
  Serious: Yes (Disabling, Other)
  Sender: FDA-Public Use
  Company Number: US-GLAXOSMITHKLINE-A0995967A

PATIENT
  Age: 29 Year
  Sex: Female
  Weight: 54.1 kg

DRUGS (8)
  1. BENLYSTA [Suspect]
     Indication: SYSTEMIC LUPUS ERYTHEMATOSUS
     Dosage: 520MG Monthly
     Route: 042
     Dates: start: 20110726, end: 20120702
  2. PREDNISONE [Concomitant]
  3. PLAQUENIL [Concomitant]
  4. BABY ASPIRIN [Concomitant]
  5. MULTIVITAMIN + IRON [Concomitant]
  6. CALCIUM [Concomitant]
  7. IRON [Concomitant]
  8. OMEPRAZOLE [Concomitant]

REACTIONS (2)
  - Lupus nephritis [Not Recovered/Not Resolved]
  - Proteinuria [Not Recovered/Not Resolved]
